FAERS Safety Report 13820923 (Version 2)
Quarter: 2017Q3

REPORT INFORMATION
  Report Type: Spontaneous
  Country: US (occurrence: US)
  Receive Date: 20170801
  Receipt Date: 20170823
  Transmission Date: 20171127
  Serious: Yes (Hospitalization, Other)
  Sender: FDA-Public Use
  Company Number: US-PFIZER INC-2017331380

PATIENT
  Age: 53 Year
  Sex: Female
  Weight: 77 kg

DRUGS (12)
  1. PHENYTOIN. [Suspect]
     Active Substance: PHENYTOIN
     Indication: EPILEPSY
     Dosage: 5 ML, 2X/DAY
     Route: 048
     Dates: start: 20170621, end: 20170711
  2. PROMETHAZINE [Concomitant]
     Active Substance: PROMETHAZINE\PROMETHAZINE HYDROCHLORIDE
     Indication: NAUSEA
     Dosage: 12.5 MG, 2X/DAY
  3. PHENYTOIN SODIUM. [Suspect]
     Active Substance: PHENYTOIN SODIUM
     Indication: EPILEPSY
     Dosage: 100 MG, 3X/DAY
     Route: 048
     Dates: start: 201708, end: 20170808
  4. CITALOPRAM [Concomitant]
     Active Substance: CITALOPRAM HYDROBROMIDE
     Indication: DEPRESSION
     Dosage: 40 MG, 1X/DAY, (AT NIGHT)
     Dates: start: 2007
  5. PANTOPRAZOLE [Concomitant]
     Active Substance: PANTOPRAZOLE
     Indication: GASTRITIS EROSIVE
     Dosage: 40 MG, DAILY
     Route: 048
  6. PROMETHAZINE [Concomitant]
     Active Substance: PROMETHAZINE\PROMETHAZINE HYDROCHLORIDE
     Indication: GASTRITIS EROSIVE
  7. CLONAZEPAM. [Concomitant]
     Active Substance: CLONAZEPAM
     Indication: ANXIETY
     Dosage: 1 MG, 4X/DAY, (EVERY 6 HOURS)
     Dates: start: 2014
  8. PHENYTOIN. [Suspect]
     Active Substance: PHENYTOIN
     Dosage: 7 ML, 2X/DAY
     Route: 048
     Dates: start: 20170712, end: 201708
  9. DICYCLOMINE [Concomitant]
     Active Substance: DICYCLOMINE HYDROCHLORIDE
  10. PROMETHAZINE [Concomitant]
     Active Substance: PROMETHAZINE\PROMETHAZINE HYDROCHLORIDE
     Indication: GASTRITIS
  11. TRAZODONE [Concomitant]
     Active Substance: TRAZODONE HYDROCHLORIDE
     Indication: SLEEP DISORDER
     Dosage: 200 MG, 1X/DAY, (AT BEDTIME)
     Dates: start: 2014
  12. KEPPRA [Concomitant]
     Active Substance: LEVETIRACETAM
     Indication: GASTRITIS EROSIVE
     Dosage: UNK
     Route: 048
     Dates: start: 20170421, end: 201706

REACTIONS (7)
  - Feeling abnormal [Not Recovered/Not Resolved]
  - Hypoaesthesia oral [Recovered/Resolved]
  - Generalised tonic-clonic seizure [Not Recovered/Not Resolved]
  - Depression [Recovered/Resolved]
  - Suicidal ideation [Recovered/Resolved]
  - Condition aggravated [Recovered/Resolved]
  - Nausea [Not Recovered/Not Resolved]

NARRATIVE: CASE EVENT DATE: 201706
